FAERS Safety Report 4430921-5 (Version None)
Quarter: 2004Q3

REPORT INFORMATION
  Report Type: 
  Country: None (occurrence: None)
  Receive Date: 20040823
  Receipt Date: 20020516
  Transmission Date: 20050211
  Serious: Yes (Hospitalization, Other)
  Sender: FDA-Public Use
  Company Number: US-MERCK-0205USA02107

PATIENT
  Age: 48 Year
  Sex: Female
  Weight: 100 kg

DRUGS (10)
  1. TYLENOL [Concomitant]
     Route: 065
     Dates: start: 19980107
  2. LASIX [Concomitant]
     Indication: OEDEMA PERIPHERAL
     Route: 065
     Dates: start: 19910201
  3. LASIX [Concomitant]
     Indication: CARDIAC DISORDER
     Route: 065
     Dates: start: 19910201
  4. GINKGO BILOBA EXTRACT [Concomitant]
     Route: 065
     Dates: start: 20000501
  5. GINSENG [Concomitant]
     Route: 065
     Dates: start: 20000501
  6. NAPROXEN [Concomitant]
     Route: 065
     Dates: start: 19980107
  7. KLOR-CON [Concomitant]
     Route: 065
  8. SLOW-K [Concomitant]
     Route: 065
  9. VIOXX [Suspect]
     Indication: ARTHRITIS
     Route: 048
     Dates: start: 20000701
  10. COUMADIN [Concomitant]
     Indication: THROMBOSIS
     Route: 065
     Dates: start: 19910201

REACTIONS (38)
  - ABDOMINAL DISTENSION [None]
  - ABDOMINAL PAIN UPPER [None]
  - ADVERSE EVENT [None]
  - ANGIONEUROTIC OEDEMA [None]
  - ANXIETY [None]
  - ATRIOVENTRICULAR BLOCK SECOND DEGREE [None]
  - BLOOD CREATINE PHOSPHOKINASE INCREASED [None]
  - BREAST PAIN [None]
  - BRONCHITIS [None]
  - BUNDLE BRANCH BLOCK [None]
  - CELLULITIS [None]
  - CEREBROVASCULAR ACCIDENT [None]
  - CHEST PAIN [None]
  - DEPRESSION [None]
  - DIZZINESS [None]
  - DYSPEPSIA [None]
  - EPIGASTRIC DISCOMFORT [None]
  - FATIGUE [None]
  - HYPERTENSION [None]
  - INTERVERTEBRAL DISC DEGENERATION [None]
  - LIPIDS ABNORMAL [None]
  - NASAL CONGESTION [None]
  - NASOPHARYNGITIS [None]
  - NAUSEA [None]
  - NECK PAIN [None]
  - OSTEOARTHRITIS [None]
  - OSTEOCHONDROSIS [None]
  - PALPITATIONS [None]
  - PARAESTHESIA [None]
  - PLEURISY [None]
  - PULMONARY VALVE INCOMPETENCE [None]
  - SINUS TACHYCARDIA [None]
  - SPINAL COLUMN STENOSIS [None]
  - THROAT TIGHTNESS [None]
  - TRICUSPID VALVE INCOMPETENCE [None]
  - UPPER RESPIRATORY TRACT INFECTION [None]
  - VAGINAL MYCOSIS [None]
  - VOMITING [None]
